FAERS Safety Report 25482387 (Version 2)
Quarter: 2025Q3

REPORT INFORMATION
  Report Type: Report from Study
  Country: UY (occurrence: UY)
  Receive Date: 20250626
  Receipt Date: 20250714
  Transmission Date: 20251021
  Serious: Yes (Other)
  Sender: ABBVIE
  Company Number: UY-ABBVIE-6341327

PATIENT
  Age: 19 Year
  Sex: Male

DRUGS (1)
  1. RINVOQ [Suspect]
     Active Substance: UPADACITINIB
     Indication: Dermatitis atopic
     Dosage: FROM STRENGTH 15 MILLIGRAM, 30 TABLETS
     Route: 048
     Dates: start: 20240708, end: 20250618

REACTIONS (3)
  - Asthmatic crisis [Unknown]
  - Influenza [Unknown]
  - Nasopharyngitis [Not Recovered/Not Resolved]

NARRATIVE: CASE EVENT DATE: 20250617
